FAERS Safety Report 17727842 (Version 1)
Quarter: 2020Q2

REPORT INFORMATION
  Report Type: Spontaneous
  Country: US (occurrence: US)
  Receive Date: 20200429
  Receipt Date: 20200429
  Transmission Date: 20200714
  Serious: Yes (Death)
  Sender: FDA-Public Use
  Company Number: None

PATIENT
  Age: 70 Year
  Sex: Male

DRUGS (12)
  1. FEBUXOSTAT. [Concomitant]
     Active Substance: FEBUXOSTAT
  2. TORSEMIDE. [Concomitant]
     Active Substance: TORSEMIDE
  3. AMLODIPINE [Concomitant]
     Active Substance: AMLODIPINE BESYLATE
  4. RETACRIT [Suspect]
     Active Substance: EPOETIN ALFA-EPBX
     Indication: PRODUCT USED FOR UNKNOWN INDICATION
     Dosage: ?          OTHER FREQUENCY:TWICE WEEKLY;?
     Route: 058
     Dates: start: 20200408, end: 20200425
  5. TRIAMCINOLON [Concomitant]
  6. ACYCLOVIR. [Concomitant]
     Active Substance: ACYCLOVIR
  7. PREDNISONE. [Concomitant]
     Active Substance: PREDNISONE
  8. NINLARO [Suspect]
     Active Substance: IXAZOMIB CITRATE
     Indication: PLASMA CELL MYELOMA
     Dosage: ?          OTHER FREQUENCY:EVERY WEEK;?
     Route: 048
     Dates: start: 20191221, end: 20200425
  9. CEPHALEXIN. [Concomitant]
     Active Substance: CEPHALEXIN
  10. ALLOPURINOL. [Concomitant]
     Active Substance: ALLOPURINOL
  11. METOPROL SUC [Concomitant]
  12. COLCHICINE. [Concomitant]
     Active Substance: COLCHICINE

REACTIONS (1)
  - Death [None]

NARRATIVE: CASE EVENT DATE: 20200425
